FAERS Safety Report 9863456 (Version 1)
Quarter: 2014Q1

REPORT INFORMATION
  Report Type: Spontaneous
  Country: US (occurrence: US)
  Receive Date: 20140203
  Receipt Date: 20140203
  Transmission Date: 20141002
  Serious: Yes (Hospitalization)
  Sender: FDA-Public Use
  Company Number: US-ACTELION-A-US2014-94208

PATIENT
  Age: 72 Year
  Sex: Female

DRUGS (2)
  1. OPSUMIT [Suspect]
     Indication: PULMONARY HYPERTENSION
     Dosage: 10 MG, QD
     Route: 048
     Dates: start: 20140108
  2. COUMADIN [Concomitant]

REACTIONS (1)
  - Asthma [Unknown]
